FAERS Safety Report 22981768 (Version 2)
Quarter: 2023Q4

REPORT INFORMATION
  Report Type: Report from Study
  Country: ZA (occurrence: ZA)
  Receive Date: 20230925
  Receipt Date: 20231009
  Transmission Date: 20240109
  Serious: Yes (Hospitalization)
  Sender: FDA-Public Use
  Company Number: ZA-BIOGEN-2023BI01221820

PATIENT
  Age: 38 Year
  Sex: Female

DRUGS (9)
  1. PLEGRIDY [Suspect]
     Active Substance: PEGINTERFERON BETA-1A
     Indication: Relapsing-remitting multiple sclerosis
     Dosage: FORTNIGHTLY, SUBCUTANEOUSLY ON RIGHT UPPER OUTER THIGH
     Route: 050
     Dates: start: 20230420, end: 20230826
  2. SPIRACTIN [Concomitant]
     Indication: Product used for unknown indication
     Dosage: MORNING
     Route: 050
  3. CARVEDILOL [Concomitant]
     Active Substance: CARVEDILOL
     Indication: Product used for unknown indication
     Dosage: MORNING
     Route: 050
  4. GLUCOPHAGE [Concomitant]
     Active Substance: METFORMIN HYDROCHLORIDE
     Indication: Product used for unknown indication
     Dosage: MORNING
     Route: 050
  5. HYDROCHLOROTHIAZIDE [Concomitant]
     Active Substance: HYDROCHLOROTHIAZIDE
     Indication: Product used for unknown indication
     Dosage: MORNING
     Route: 050
  6. Convulex [Concomitant]
     Indication: Product used for unknown indication
     Dosage: MORNING, NIGHT
     Route: 050
  7. WARFARIN [Concomitant]
     Active Substance: WARFARIN
     Indication: Product used for unknown indication
     Dosage: NIGHT
     Route: 050
  8. AMITRIPTYLINE [Concomitant]
     Active Substance: AMITRIPTYLINE
     Indication: Product used for unknown indication
     Dosage: NIGHT
     Route: 050
  9. ATORVASTATIN CALCIUM [Concomitant]
     Active Substance: ATORVASTATIN CALCIUM
     Indication: Product used for unknown indication
     Dosage: NIGHT
     Route: 050

REACTIONS (3)
  - Platelet count abnormal [Not Recovered/Not Resolved]
  - Purpura [Not Recovered/Not Resolved]
  - International normalised ratio increased [Not Recovered/Not Resolved]

NARRATIVE: CASE EVENT DATE: 20230815
